FAERS Safety Report 4994691-4 (Version None)
Quarter: 2006Q1

REPORT INFORMATION
  Report Type: 
  Country: None (occurrence: None)
  Receive Date: 20060313
  Receipt Date: 20060124
  Transmission Date: 20060701
  Serious: No
  Sender: FDA-Public Use
  Company Number: 2005-BP-20340BP

PATIENT
  Sex: Male

DRUGS (4)
  1. SPIRIVA [Suspect]
     Indication: CHRONIC OBSTRUCTIVE PULMONARY DISEASE
     Dosage: 18 MCG (18 MCG,1 IN 1 D),IH
     Dates: start: 20051106
  2. TYLENOL (GELTAB) [Concomitant]
  3. CALCAIN +D [Concomitant]
  4. ZYRTEC [Concomitant]

REACTIONS (1)
  - VISUAL ACUITY REDUCED [None]
